FAERS Safety Report 6998222-9 (Version None)
Quarter: 2010Q3

REPORT INFORMATION
  Report Type: 
  Country: None (occurrence: None)
  Receive Date: 20100920
  Receipt Date: 20100217
  Transmission Date: 20110219
  Serious: Yes (Other)
  Sender: FDA-Public Use
  Company Number: US-ASTRAZENECA-2009UW20644

PATIENT
  Age: 14715 Day
  Sex: Male

DRUGS (6)
  1. SEROQUEL [Suspect]
     Dosage: 200 TO 300 MG
     Route: 048
     Dates: start: 20061017
  2. HALDOL DEC [Concomitant]
     Dosage: 100 MG/ML
     Dates: start: 20060919
  3. CITALOPRAM HYDROBROMIDE [Concomitant]
     Dates: start: 20060919
  4. HALOPERIDOL [Concomitant]
     Dosage: 5 TO 10 MG
     Dates: start: 20060919
  5. LISINOPRIL [Concomitant]
     Dosage: EVERYDAY
     Route: 048
     Dates: start: 20080918
  6. RISPERDAL [Concomitant]
     Dosage: EVERYDAY
     Route: 048
     Dates: start: 20080918

REACTIONS (3)
  - KETOACIDOSIS [None]
  - PANCREATITIS [None]
  - TYPE 2 DIABETES MELLITUS [None]
